FAERS Safety Report 15449591 (Version 1)
Quarter: 2018Q4

REPORT INFORMATION
  Report Type: Report from Study
  Country: None (occurrence: IL)
  Receive Date: 20181001
  Receipt Date: 20181001
  Transmission Date: 20190204
  Serious: Yes (Hospitalization, Other)
  Sender: FDA-Public Use
  Company Number: IL-ABBVIE-18K-082-2218279-00

PATIENT
  Sex: Female

DRUGS (4)
  1. HUMIRA [Suspect]
     Active Substance: ADALIMUMAB
     Indication: CROHN^S DISEASE
     Route: 058
     Dates: start: 20171129, end: 201806
  2. HUMIRA [Suspect]
     Active Substance: ADALIMUMAB
     Dosage: LOADING AGAIN
     Route: 058
     Dates: start: 201806, end: 201806
  3. HUMIRA [Suspect]
     Active Substance: ADALIMUMAB
     Dosage: LOADING AGAIN
     Route: 058
     Dates: start: 2018
  4. HUMIRA [Suspect]
     Active Substance: ADALIMUMAB
     Dosage: LOADING AGAIN
     Route: 058
     Dates: start: 2018, end: 2018

REACTIONS (6)
  - Infected fistula [Unknown]
  - Abdominal pain [Not Recovered/Not Resolved]
  - Drug ineffective [Unknown]
  - Diarrhoea [Not Recovered/Not Resolved]
  - Fistula [Unknown]
  - Constipation [Not Recovered/Not Resolved]

NARRATIVE: CASE EVENT DATE: 2017
